FAERS Safety Report 5256946-8 (Version None)
Quarter: 2007Q1

REPORT INFORMATION
  Report Type: 
  Country: None (occurrence: None)
  Receive Date: 20070305
  Receipt Date: 20070305
  Transmission Date: 20070707
  Serious: Yes (Other)
  Sender: FDA-Public Use
  Company Number: None

PATIENT
  Age: 58 Year
  Sex: Female
  Weight: 56.6996 kg

DRUGS (1)
  1. CYMBALTA [Suspect]
     Indication: DEPRESSION
     Dosage: 2/60MG DALY PO
     Route: 048
     Dates: start: 20060201, end: 20061201

REACTIONS (2)
  - DRUG WITHDRAWAL SYNDROME [None]
  - MUSCLE SPASMS [None]
